FAERS Safety Report 25282296 (Version 2)
Quarter: 2025Q3

REPORT INFORMATION
  Report Type: Spontaneous
  Country: RU (occurrence: RU)
  Receive Date: 20250508
  Receipt Date: 20250716
  Transmission Date: 20251021
  Serious: Yes (Other)
  Sender: ABBVIE
  Company Number: RU-RICHTER-2025-GR-004969

PATIENT
  Age: 21 Year
  Sex: Female

DRUGS (4)
  1. CARIPRAZINE [Suspect]
     Active Substance: CARIPRAZINE
     Indication: Schizophrenia
     Dosage: 1.5 MG ONCE A DAY
     Route: 048
     Dates: start: 20250206, end: 20250212
  2. QUETIAPINE [Concomitant]
     Active Substance: QUETIAPINE
     Indication: Product used for unknown indication
     Route: 048
     Dates: start: 20250206
  3. SERTINDOLE [Suspect]
     Active Substance: SERTINDOLE
     Indication: Schizophrenia
     Dosage: 12 MG ONCE A DAY
     Route: 048
     Dates: start: 20250212, end: 20250219
  4. BIPERIDEN [Concomitant]
     Active Substance: BIPERIDEN
     Indication: Product used for unknown indication
     Route: 048
     Dates: start: 20250207

REACTIONS (9)
  - Depressed mood [Recovering/Resolving]
  - Decreased appetite [Recovering/Resolving]
  - Anxiety [Recovering/Resolving]
  - Nausea [Recovering/Resolving]
  - Muscle spasms [Recovering/Resolving]
  - Heart rate increased [Recovering/Resolving]
  - Fear [Recovering/Resolving]
  - Hallucination [Recovering/Resolving]
  - Blood pressure systolic increased [Recovering/Resolving]

NARRATIVE: CASE EVENT DATE: 20250207
